FAERS Safety Report 5792329-X (Version None)
Quarter: 2008Q2

REPORT INFORMATION
  Report Type: 
  Country: None (occurrence: None)
  Receive Date: 20080626
  Receipt Date: 20080219
  Transmission Date: 20081010
  Serious: No
  Sender: FDA-Public Use
  Company Number: US-ASTRAZENECA-2008UW03375

PATIENT
  Sex: Female

DRUGS (10)
  1. PULMICORT RESPULES [Suspect]
     Indication: ASTHMA
     Route: 055
     Dates: start: 20070301
  2. PULMICORT RESPULES [Suspect]
     Indication: BRONCHITIS CHRONIC
     Route: 055
     Dates: start: 20070301
  3. ALBUTEROL [Concomitant]
  4. IPRATROPIUM BROMIDE [Concomitant]
  5. CARTIA XT [Concomitant]
  6. COZAAR [Concomitant]
  7. DIURETIC [Concomitant]
  8. THYROID PILL [Concomitant]
  9. MUCINEX [Concomitant]
  10. DEPAKOTE [Concomitant]

REACTIONS (2)
  - DEPRESSION [None]
  - INSOMNIA [None]
